FAERS Safety Report 9674268 (Version 1)
Quarter: 2013Q4

REPORT INFORMATION
  Report Type: Spontaneous
  Country: CH (occurrence: CH)
  Receive Date: 20131107
  Receipt Date: 20131107
  Transmission Date: 20140711
  Serious: Yes (Hospitalization)
  Sender: FDA-Public Use
  Company Number: PHHY2013CH123529

PATIENT
  Age: 84 Year
  Sex: Male

DRUGS (12)
  1. DIGOXIN [Suspect]
     Dosage: 0.125 MG, QD
     Route: 048
     Dates: start: 20130709
  2. MORPHINE [Suspect]
     Indication: ABDOMINAL PAIN
     Dosage: 4 MG, QID
     Route: 058
     Dates: start: 20130710
  3. MORPHINE [Suspect]
     Indication: PELVIC PAIN
  4. SEROQUEL [Suspect]
     Dosage: 6.5 MG, BID
     Route: 048
     Dates: start: 20130710, end: 20130711
  5. NOZINAN [Suspect]
     Dosage: 5 MG, QD
     Route: 048
     Dates: start: 20130710, end: 20130710
  6. DISTRANEURINE [Suspect]
     Dosage: 300 MG, QD
     Route: 048
     Dates: start: 20130710, end: 20130710
  7. CLEXANE [Concomitant]
     Indication: ATRIAL FIBRILLATION
     Dosage: 60 MG, BID
     Route: 058
  8. CITALOPRAM [Concomitant]
     Indication: DEPRESSION
     Dosage: 20 MG, QD
     Route: 048
  9. DAFALGAN [Concomitant]
     Indication: PAIN
     Dosage: 500 MG, QID
     Route: 048
  10. TOREM [Concomitant]
     Dosage: 5 MG, QD
     Route: 048
  11. ENALAPRIL [Concomitant]
     Indication: ESSENTIAL HYPERTENSION
     Dosage: 20 MG, QD
     Route: 048
  12. PRADIF [Concomitant]
     Indication: BENIGN PROSTATIC HYPERPLASIA
     Dosage: 0.4 MG, QD
     Route: 048

REACTIONS (1)
  - Somnolence [Recovered/Resolved]
